FAERS Safety Report 5336974-4 (Version None)
Quarter: 2007Q2

REPORT INFORMATION
  Report Type: 
  Country: None (occurrence: None)
  Receive Date: 20070529
  Receipt Date: 20070516
  Transmission Date: 20071010
  Serious: Yes (Hospitalization)
  Sender: FDA-Public Use
  Company Number: JP-MERCK-0704USA06359

PATIENT
  Age: 84 Year
  Sex: Female
  Weight: 37 kg

DRUGS (9)
  1. FOSAMAX [Suspect]
     Indication: OSTEOPOROSIS
     Route: 048
     Dates: start: 20040617, end: 20061226
  2. LOXONIN [Concomitant]
     Route: 048
  3. FAMOTIDINE [Concomitant]
     Route: 048
  4. CYTOTEC [Concomitant]
     Route: 048
  5. HALCION [Concomitant]
     Route: 065
  6. NIVADIL [Concomitant]
     Route: 048
  7. TENORMIN [Concomitant]
     Indication: HYPERTENSION
     Route: 048
  8. FLURBIPROFEN [Concomitant]
     Indication: RHEUMATOID ARTHRITIS
     Route: 061
  9. [THERAPY UNSPECIFIED] [Concomitant]
     Indication: RHEUMATOID ARTHRITIS
     Route: 061

REACTIONS (1)
  - OSTEONECROSIS [None]
